FAERS Safety Report 6304419-3 (Version None)
Quarter: 2009Q3

REPORT INFORMATION
  Report Type: 
  Country: None (occurrence: None)
  Receive Date: 20090811
  Receipt Date: 20090804
  Transmission Date: 20100115
  Serious: Yes (Other)
  Sender: FDA-Public Use
  Company Number: PHHY2009JP31712

PATIENT
  Age: 36 Year
  Sex: Female

DRUGS (8)
  1. NEORAL [Suspect]
     Indication: DERMATOMYOSITIS
     Dosage: 200 MG/DAY
     Route: 048
     Dates: start: 20070801, end: 20081201
  2. NEORAL [Suspect]
     Dosage: 100 MG/DAY
     Route: 048
     Dates: start: 20081201
  3. PREDNISOLONE [Suspect]
     Indication: DERMATOMYOSITIS
     Dosage: 40 MG/DAY
     Route: 048
     Dates: start: 20070801, end: 20081201
  4. PREDNISOLONE [Suspect]
     Dosage: 16 MG/DAY
     Route: 048
     Dates: start: 20081201
  5. BONALON [Concomitant]
     Dosage: 35 MG
  6. ATARAX [Concomitant]
  7. ALENDRONIC ACID [Concomitant]
     Indication: DERMATOMYOSITIS
  8. HYDROXYZINE [Concomitant]
     Indication: DERMATOMYOSITIS

REACTIONS (2)
  - ORAL CANDIDIASIS [None]
  - ORAL HAIRY LEUKOPLAKIA [None]
